FAERS Safety Report 4427549-X (Version None)
Quarter: 2004Q3

REPORT INFORMATION
  Report Type: 
  Country: None (occurrence: None)
  Receive Date: 20040812
  Receipt Date: 20040806
  Transmission Date: 20050211
  Serious: Yes (Hospitalization)
  Sender: FDA-Public Use
  Company Number: MK200408-0067-1

PATIENT
  Age: 69 Year
  Sex: Male

DRUGS (61)
  1. OPTIRAY 320 [Suspect]
     Indication: CATHETERISATION CARDIAC
     Dosage: 136 ML, ONCE
     Dates: start: 20030930, end: 20030930
  2. ACETYLCYSTEINE [Concomitant]
  3. ASPIRIN [Concomitant]
  4. LISINOPRIL [Concomitant]
  5. NIFEDIPINE [Concomitant]
  6. DINITRATE [Concomitant]
  7. SIMVASTATIN [Concomitant]
  8. METOPROLOL [Concomitant]
  9. PANTOPRAZOLE [Concomitant]
  10. ACETAMINOPHEN [Concomitant]
  11. ZOLPIDEM TARTRATE [Concomitant]
  12. HEPARIN [Concomitant]
  13. ATROPINE [Concomitant]
  14. MORPHINE [Concomitant]
  15. CIPROFLOXACIN [Concomitant]
  16. DOCUSATE [Concomitant]
  17. ONDANSETRON [Concomitant]
  18. NITROGLYCERIN [Concomitant]
  19. LEVOFLOXACIN [Concomitant]
  20. FERROUS SULFATE TAB [Concomitant]
  21. MIDAZOLAM HYDROCHLORIDE [Concomitant]
  22. DIPHENHYDRAMINE (BENADRYL) [Concomitant]
  23. SODIUM CHLORIDE INJ [Concomitant]
  24. FUROSEMIDE [Concomitant]
  25. INSULIN [Concomitant]
  26. CALCIUM GLUCONATE [Concomitant]
  27. DOPAMINE HCL [Concomitant]
  28. METOCHLOPRAMIDE [Concomitant]
  29. MAGNESIUM HYDROXIDE (MILK OF MAGNESIA) [Concomitant]
  30. PETHIDINE HYDROCHLORIDE (MERPERIDINE) [Concomitant]
  31. CODEINE SUL TAB [Concomitant]
  32. BISACODYL [Concomitant]
  33. EPOETIN ALFA [Concomitant]
  34. IBUPROFEN [Concomitant]
  35. HIBICLEANS SHOWER [Concomitant]
  36. SODIUM POLYSTEYRENE SULFONATE (KAYEXALATE) [Concomitant]
  37. DESTROSE 50 [Concomitant]
  38. TRAZODONE [Concomitant]
  39. LIDOCAINE 2% JELLY [Concomitant]
  40. SUCRALFATE [Concomitant]
  41. CALCIUM CARBOINATE [Concomitant]
  42. SENNA [Concomitant]
  43. ALBUMIN (HUMAN) [Concomitant]
  44. CLOPIDOGREL BISULFATE [Concomitant]
  45. AMIODARONE [Concomitant]
  46. CHLOROTHIAZIDE [Concomitant]
  47. MUPIROCIN (BACTOBAN) [Concomitant]
  48. SALBUTAMOL (ALBUTEROL) [Concomitant]
  49. AMRINONE [Concomitant]
  50. APROTININ [Concomitant]
  51. CEFAZOLIN [Concomitant]
  52. FENTAMYL [Concomitant]
  53. GLYCOPYRRONUIM BROMIDE (GLYCOPYRROLATE) [Concomitant]
  54. LORAZEPAM [Concomitant]
  55. MAGNESIUM SULFATE [Concomitant]
  56. MANNITOL [Concomitant]
  57. PROTAMINE SULFATE [Concomitant]
  58. THIOPENTAL SODIUM [Concomitant]
  59. SODIUM CHLORIDE (RINGERS SOLUTION) [Concomitant]
  60. BLOOD TRANSFUSIONS [Concomitant]
  61. NOREPINEPHRINE [Concomitant]

REACTIONS (11)
  - BLOOD CREATINE INCREASED [None]
  - BRADYCARDIA [None]
  - GRAFT COMPLICATION [None]
  - HAEMATOCRIT DECREASED [None]
  - HYPOTENSION [None]
  - MYOCARDIAL INFARCTION [None]
  - POST PROCEDURAL COMPLICATION [None]
  - RALES [None]
  - RENAL HAEMATOMA [None]
  - RENAL HAEMORRHAGE [None]
  - SURGICAL PROCEDURE REPEATED [None]
